FAERS Safety Report 5484402-0 (Version None)
Quarter: 2007Q4

REPORT INFORMATION
  Report Type: 
  Country: None (occurrence: None)
  Receive Date: 20071010
  Receipt Date: 20070928
  Transmission Date: 20080405
  Serious: Yes (Other)
  Sender: FDA-Public Use
  Company Number: 2007-165149-NL

PATIENT
  Age: 68 Year
  Sex: Female
  Weight: 70.3 kg

DRUGS (6)
  1. REMERON [Suspect]
     Indication: ANXIETY
     Dosage: 30 MG DAILY, AT TIMES SHE WAS UP TO 45 OR 60 MG
     Dates: start: 20010101, end: 20070801
  2. REMERON [Suspect]
     Indication: DEPRESSION
     Dosage: 30 MG DAILY, AT TIMES SHE WAS UP TO 45 OR 60 MG
     Dates: start: 20010101, end: 20070801
  3. XANAX [Concomitant]
  4. SYNTHROID [Concomitant]
  5. LEXAPRO [Concomitant]
  6. GLYBURIDE [Concomitant]

REACTIONS (8)
  - BACK PAIN [None]
  - BURNING SENSATION [None]
  - FEELING JITTERY [None]
  - FOOD CRAVING [None]
  - GLUCOSE TOLERANCE IMPAIRED [None]
  - INCREASED APPETITE [None]
  - WEIGHT DECREASED [None]
  - WEIGHT INCREASED [None]
